FAERS Safety Report 12437234 (Version 2)
Quarter: 2016Q2

REPORT INFORMATION
  Report Type: Spontaneous
  Country: US (occurrence: US)
  Receive Date: 20160606
  Receipt Date: 20160610
  Transmission Date: 20160815
  Serious: Yes (Death, Hospitalization, Other)
  Sender: FDA-Public Use
  Company Number: US-ROCHE-1753457

PATIENT
  Age: 74 Year
  Sex: Male

DRUGS (31)
  1. TRAZODONE HYDROCHLORIDE. [Concomitant]
     Active Substance: TRAZODONE HYDROCHLORIDE
     Route: 065
  2. ALLOPURINOL. [Concomitant]
     Active Substance: ALLOPURINOL
     Route: 048
  3. ATORVASTATIN CALCIUM. [Concomitant]
     Active Substance: ATORVASTATIN CALCIUM
  4. DEXTROSE. [Concomitant]
     Active Substance: DEXTROSE
     Route: 042
     Dates: start: 20160504
  5. DEXTROSE. [Concomitant]
     Active Substance: DEXTROSE
     Route: 042
  6. MAGNESIUM OXIDE. [Concomitant]
     Active Substance: MAGNESIUM OXIDE
     Dosage: WITH BREAKFAST
     Route: 048
  7. POTASSIUM CHLORIDE ERT [Concomitant]
     Route: 048
  8. PREDNISONE. [Concomitant]
     Active Substance: PREDNISONE
     Dosage: WITH BREAKFAST
     Route: 048
  9. NIFEDIPINE XL [Concomitant]
     Active Substance: NIFEDIPINE
     Route: 048
  10. VANCOMYCIN [Concomitant]
     Active Substance: VANCOMYCIN
     Route: 042
     Dates: start: 20160504
  11. AVODART [Concomitant]
     Active Substance: DUTASTERIDE
     Dosage: AT BEDTIME
     Route: 048
  12. BACLOFEN. [Concomitant]
     Active Substance: BACLOFEN
     Indication: MUSCLE SPASMS
     Dosage: AS NEEDED
     Route: 048
  13. LEVOFLOXACIN. [Concomitant]
     Active Substance: LEVOFLOXACIN
     Route: 067
     Dates: start: 20160504
  14. SODIUM CHLORIDE. [Concomitant]
     Active Substance: SODIUM CHLORIDE
     Route: 065
  15. HYDRALAZINE HCL [Concomitant]
     Active Substance: HYDRALAZINE HYDROCHLORIDE
     Route: 042
     Dates: start: 20160504
  16. SPIRONOLACTONE. [Concomitant]
     Active Substance: SPIRONOLACTONE
     Route: 048
  17. FAMOTIDINE. [Concomitant]
     Active Substance: FAMOTIDINE
     Route: 048
  18. TRIAMCINOLONE ACETATE [Concomitant]
     Active Substance: TRIAMCINOLONE ACETONIDE
     Indication: RASH
  19. ASPIR 81 [Concomitant]
     Route: 048
  20. FLUTICASONE PROPIONATE. [Concomitant]
     Active Substance: FLUTICASONE PROPIONATE
     Dosage: EVERY MORNING
     Route: 045
  21. TERAZOSIN [Concomitant]
     Active Substance: TERAZOSIN\TERAZOSIN HYDROCHLORIDE
     Dosage: BEDTIME
     Route: 048
  22. ESBRIET [Suspect]
     Active Substance: PIRFENIDONE
     Indication: IDIOPATHIC PULMONARY FIBROSIS
     Route: 048
     Dates: start: 20160224
  23. FUROSEMIDE. [Concomitant]
     Active Substance: FUROSEMIDE
     Route: 048
  24. CHOLECALCIFEROL [Concomitant]
     Active Substance: CHOLECALCIFEROL
     Route: 048
  25. LOSARTAN. [Concomitant]
     Active Substance: LOSARTAN
     Route: 048
  26. TRIAMCINOLONE ACETATE [Concomitant]
     Active Substance: TRIAMCINOLONE ACETONIDE
     Indication: PRURITUS
     Dosage: AS NEEDED
     Route: 061
  27. MORPHINE [Concomitant]
     Active Substance: MORPHINE
     Route: 037
  28. ACETAMINOPHEN. [Concomitant]
     Active Substance: ACETAMINOPHEN
     Route: 048
  29. BISACODYL. [Concomitant]
     Active Substance: BISACODYL
     Indication: CONSTIPATION
     Dosage: AS NEEDED
     Route: 048
  30. TRAZODONE [Concomitant]
     Active Substance: TRAZODONE HYDROCHLORIDE
     Indication: INSOMNIA
     Dosage: AS NEEDED AT BEDTIME
     Route: 048
  31. NITROGLYCERIN. [Concomitant]
     Active Substance: NITROGLYCERIN
     Route: 042
     Dates: start: 20160504

REACTIONS (16)
  - Dilatation ventricular [Unknown]
  - Dizziness [Unknown]
  - Dyspnoea exertional [Unknown]
  - Systolic dysfunction [Unknown]
  - Pulmonary arterial pressure increased [Unknown]
  - Death [Fatal]
  - Dyspnoea [Unknown]
  - Myalgia [Unknown]
  - Pulmonary oedema [Unknown]
  - Oedema [Unknown]
  - Constipation [Unknown]
  - Oxygen saturation decreased [Unknown]
  - Pneumonia [Unknown]
  - Hypertension [Unknown]
  - Orthopnoea [Unknown]
  - Blood gases abnormal [Unknown]

NARRATIVE: CASE EVENT DATE: 20160509
